FAERS Safety Report 6668311-7 (Version None)
Quarter: 2010Q2

REPORT INFORMATION
  Report Type: 
  Country: None (occurrence: None)
  Receive Date: 20100406
  Receipt Date: 20100329
  Transmission Date: 20101027
  Serious: Yes (Life-Threatening, Hospitalization, Other)
  Sender: FDA-Public Use
  Company Number: FR-TYCO HEALTHCARE/MALLINCKRODT-T201000920

PATIENT
  Age: 39 Year

DRUGS (4)
  1. FLUOXETINE [Suspect]
  2. TIANEPTINE [Suspect]
     Dosage: UNK
  3. BROMAZEPAM [Suspect]
     Dosage: UNK
  4. ZOLPIDEM [Suspect]
     Dosage: 4 MG

REACTIONS (3)
  - BRADYCARDIA [None]
  - DRUG TOXICITY [None]
  - VENTRICULAR HYPOKINESIA [None]
